FAERS Safety Report 8764460 (Version 1)
Quarter: 2012Q4

REPORT INFORMATION
  Report Type: 
  Country: US (occurrence: US)
  Receive Date: 20120831
  Receipt Date: 20120831
  Transmission Date: 20130627
  Serious: Yes (Other)
  Sender: FDA-Public Use
  Company Number: US-ASTRAZENECA-2012SE61211

PATIENT
  Age: 70 Year
  Sex: Male
  Weight: 63.5 kg

DRUGS (2)
  1. CRESTOR [Suspect]
     Indication: BLOOD CHOLESTEROL INCREASED
     Route: 048
  2. A LOT MEDICATIONS [Concomitant]

REACTIONS (2)
  - Oesophageal haemorrhage [Unknown]
  - Off label use [Unknown]
